FAERS Safety Report 24285625 (Version 1)
Quarter: 2024Q3

REPORT INFORMATION
  Report Type: Report from Study
  Country: MX (occurrence: MX)
  Receive Date: 20240905
  Receipt Date: 20240905
  Transmission Date: 20241016
  Serious: Yes (Other)
  Sender: NOVARTIS
  Company Number: MX-002147023-NVSC2022MX006515

PATIENT
  Sex: Female

DRUGS (4)
  1. TASIGNA [Suspect]
     Active Substance: NILOTINIB
     Indication: Chronic myeloid leukaemia
     Dosage: UNK, Q12H
     Route: 048
  2. TASIGNA [Suspect]
     Active Substance: NILOTINIB
     Dosage: Q12H (1 MG WAS NOT SAID)
     Route: 048
  3. TASIGNA [Suspect]
     Active Substance: NILOTINIB
     Dosage: 2 DOSAGE FORM (200 MG), Q12H
     Route: 048
  4. IMATINIB [Suspect]
     Active Substance: IMATINIB
     Indication: Chronic myeloid leukaemia
     Dosage: UNK
     Route: 048

REACTIONS (38)
  - Paralysis [Recovering/Resolving]
  - Angina pectoris [Unknown]
  - Chronic myeloid leukaemia [Not Recovered/Not Resolved]
  - Malignant neoplasm progression [Not Recovered/Not Resolved]
  - Splenomegaly [Unknown]
  - Oral disorder [Unknown]
  - Yellow skin [Unknown]
  - Skin irritation [Unknown]
  - Feeling abnormal [Unknown]
  - Blood viscosity decreased [Unknown]
  - Hair texture abnormal [Unknown]
  - Dry throat [Unknown]
  - Electrocardiogram abnormal [Unknown]
  - Foreign body sensation in eyes [Unknown]
  - Sensory disturbance [Unknown]
  - Gastritis [Recovering/Resolving]
  - Abdominal pain upper [Not Recovered/Not Resolved]
  - Arthralgia [Unknown]
  - Dry skin [Unknown]
  - Depressed mood [Unknown]
  - Decreased appetite [Unknown]
  - Dyspepsia [Unknown]
  - Pain in extremity [Not Recovered/Not Resolved]
  - Pain [Unknown]
  - Arthritis [Unknown]
  - Photophobia [Unknown]
  - Headache [Recovering/Resolving]
  - Vomiting [Unknown]
  - Frustration tolerance decreased [Unknown]
  - Stress [Not Recovered/Not Resolved]
  - Laryngitis [Unknown]
  - Influenza [Unknown]
  - Throat tightness [Unknown]
  - Pharyngitis [Unknown]
  - Thyroid disorder [Unknown]
  - Hypokinesia [Unknown]
  - Alopecia [Unknown]
  - Cough [Unknown]
